FAERS Safety Report 7163928-8 (Version None)
Quarter: 2010Q4

REPORT INFORMATION
  Report Type: 
  Country: None (occurrence: None)
  Receive Date: 20101215
  Receipt Date: 20101203
  Transmission Date: 20110411
  Serious: Yes (Death, Other)
  Sender: FDA-Public Use
  Company Number: JP-GENZYME-FLUD-1000521

PATIENT
  Age: 50 Year
  Sex: Female

DRUGS (2)
  1. FLUDARA [Suspect]
     Indication: NON-HODGKIN'S LYMPHOMA
     Dosage: 25 MG/M2, QDX6
     Route: 065
  2. BUSULFAN [Suspect]
     Indication: NON-HODGKIN'S LYMPHOMA
     Dosage: 1 MG/KG, TID
     Route: 048

REACTIONS (2)
  - ACUTE GRAFT VERSUS HOST DISEASE [None]
  - DEATH [None]
